FAERS Safety Report 5662346-9 (Version None)
Quarter: 2008Q1

REPORT INFORMATION
  Report Type: 
  Country: None (occurrence: None)
  Receive Date: 20080312
  Receipt Date: 20080305
  Transmission Date: 20080703
  Serious: Yes (Other)
  Sender: FDA-Public Use
  Company Number: US-PFIZER INC-2008021039

PATIENT
  Sex: Female
  Weight: 66.7 kg

DRUGS (4)
  1. DEPO-MEDROL [Suspect]
     Indication: TENDONITIS
  2. ZITHROMAX [Suspect]
  3. DIOVAN [Concomitant]
     Indication: HYPERTENSION
  4. NORVASC [Concomitant]
     Indication: HYPERTENSION

REACTIONS (15)
  - ABDOMINAL DISTENSION [None]
  - BLOOD CHOLESTEROL INCREASED [None]
  - BLOOD CREATININE INCREASED [None]
  - BLOOD GLUCOSE INCREASED [None]
  - DIARRHOEA [None]
  - HYPERSENSITIVITY [None]
  - INJECTION SITE DISCOLOURATION [None]
  - INJECTION SITE ERYTHEMA [None]
  - INJECTION SITE IRRITATION [None]
  - INJECTION SITE PAIN [None]
  - INJECTION SITE PRURITUS [None]
  - INJECTION SITE REACTION [None]
  - OEDEMA PERIPHERAL [None]
  - PALPITATIONS [None]
  - RASH [None]
